FAERS Safety Report 22371908 (Version 1)
Quarter: 2023Q2

REPORT INFORMATION
  Report Type: Spontaneous
  Country: US (occurrence: US)
  Receive Date: 20230526
  Receipt Date: 20230526
  Transmission Date: 20230721
  Serious: No
  Sender: FDA-Public Use
  Company Number: US-PFIZER INC-202300201331

PATIENT
  Age: 40 Year
  Sex: Female
  Weight: 72.57 kg

DRUGS (4)
  1. ESTRADIOL CYPIONATE [Suspect]
     Active Substance: ESTRADIOL CYPIONATE
     Indication: Hysterectomy
     Dosage: 5 MG, EVERY 4 WEEKS OR EVERY MONTH
  2. ESTRADIOL CYPIONATE [Suspect]
     Active Substance: ESTRADIOL CYPIONATE
     Indication: Artificial menopause
     Dosage: 5 MG, EVERY 3 TO 4 WEEKS AS NEEDED
  3. ESTRADIOL CYPIONATE [Suspect]
     Active Substance: ESTRADIOL CYPIONATE
     Dosage: 5 MG, EVERY 2 WEEKS
  4. REQUIP [Concomitant]
     Active Substance: ROPINIROLE HYDROCHLORIDE
     Indication: Restless legs syndrome
     Dosage: 2MG AT NIGHT

REACTIONS (5)
  - COVID-19 [Unknown]
  - Therapeutic product effect decreased [Unknown]
  - Pain in extremity [Not Recovered/Not Resolved]
  - Weight increased [Unknown]
  - Off label use [Unknown]

NARRATIVE: CASE EVENT DATE: 20220101
